FAERS Safety Report 14091336 (Version 1)
Quarter: 2017Q4

REPORT INFORMATION
  Report Type: Spontaneous
  Country: FR (occurrence: FR)
  Receive Date: 20171016
  Receipt Date: 20171016
  Transmission Date: 20180321
  Serious: Yes (Hospitalization, Other)
  Sender: FDA-Public Use
  Company Number: FR-BRISTOL-MYERS SQUIBB COMPANY-BMS-2017-092308

PATIENT
  Age: 32 Year
  Sex: Male

DRUGS (3)
  1. SUFENTANIL [Suspect]
     Active Substance: SUFENTANIL
     Indication: TOXICITY TO VARIOUS AGENTS
     Dosage: 2 DF, ONE TIME DOSE
     Route: 042
     Dates: start: 20170809, end: 20170809
  2. ABILIFY [Suspect]
     Active Substance: ARIPIPRAZOLE
     Indication: PRODUCT USED FOR UNKNOWN INDICATION
     Dosage: 3 TAB, ONE TIME DOSE
     Route: 048
     Dates: start: 20170809, end: 20170809
  3. DULOXETINE. [Suspect]
     Active Substance: DULOXETINE
     Indication: TOXICITY TO VARIOUS AGENTS
     Dosage: 8 TAB, ONE TIME DOSE
     Route: 048
     Dates: start: 20170809, end: 20170809

REACTIONS (2)
  - Toxicity to various agents [Recovered/Resolved]
  - Coma [Recovered/Resolved]

NARRATIVE: CASE EVENT DATE: 20170809
